FAERS Safety Report 16674725 (Version 1)
Quarter: 2019Q3

REPORT INFORMATION
  Report Type: Spontaneous
  Country: US (occurrence: US)
  Receive Date: 20190806
  Receipt Date: 20190806
  Transmission Date: 20191004
  Serious: No
  Sender: FDA-Public Use
  Company Number: US-ASTRAZENECA-2019SE99119

PATIENT
  Age: 25705 Day
  Sex: Male
  Weight: 113.4 kg

DRUGS (2)
  1. BYDUREON [Suspect]
     Active Substance: EXENATIDE
     Indication: BLOOD GLUCOSE ABNORMAL
     Route: 065
     Dates: start: 20190616
  2. BYDUREON BCISE [Suspect]
     Active Substance: EXENATIDE
     Indication: BLOOD GLUCOSE ABNORMAL
     Route: 065

REACTIONS (3)
  - Injection site haemorrhage [Unknown]
  - Blood glucose increased [Unknown]
  - Weight increased [Unknown]

NARRATIVE: CASE EVENT DATE: 20190707
